FAERS Safety Report 9432284 (Version 4)
Quarter: 2013Q4

REPORT INFORMATION
  Report Type: Spontaneous
  Country: AR (occurrence: AR)
  Receive Date: 20130731
  Receipt Date: 20131018
  Transmission Date: 20140711
  Serious: Yes (Hospitalization, Other)
  Sender: FDA-Public Use
  Company Number: AR-ROCHE-1254422

PATIENT
  Age: 58 Year
  Sex: Female

DRUGS (1)
  1. MABTHERA [Suspect]
     Indication: RHEUMATOID ARTHRITIS
     Dosage: EVERY 15 DAYS AND THEN EVERY 6 MONTHS
     Route: 065
     Dates: start: 2012, end: 201307

REACTIONS (1)
  - Pituitary tumour [Unknown]
